FAERS Safety Report 7980543-4 (Version None)
Quarter: 2011Q4

REPORT INFORMATION
  Report Type: 
  Country: None (occurrence: None)
  Receive Date: 20111214
  Receipt Date: 20111212
  Transmission Date: 20120403
  Serious: Yes (Other)
  Sender: FDA-Public Use
  Company Number: DE-GLAXOSMITHKLINE-D0073254A

PATIENT
  Sex: Male
  Weight: 70 kg

DRUGS (5)
  1. FRISIUM [Concomitant]
     Indication: EPILEPSY
     Dosage: 30MG PER DAY
     Route: 065
  2. TROBALT [Suspect]
     Indication: EPILEPSY
     Dosage: 500MG THREE TIMES PER DAY
     Route: 048
     Dates: start: 20110701
  3. VIMPAT [Concomitant]
     Indication: EPILEPSY
     Dosage: 700MG PER DAY
     Route: 065
  4. ZONEGRAN [Concomitant]
     Indication: EPILEPSY
     Dosage: 100MG PER DAY
     Route: 065
  5. MEPERIDINE HCL [Concomitant]
     Indication: EPILEPSY
     Dosage: 300MG PER DAY
     Route: 065

REACTIONS (5)
  - SEIZURE CLUSTER [None]
  - DYSURIA [None]
  - BILIRUBINURIA [None]
  - OVERDOSE [None]
  - CHROMATURIA [None]
